FAERS Safety Report 16840441 (Version 1)
Quarter: 2019Q3

REPORT INFORMATION
  Report Type: Spontaneous
  Country: BR (occurrence: BR)
  Receive Date: 20190923
  Receipt Date: 20190923
  Transmission Date: 20191005
  Serious: Yes (Death, Other)
  Sender: FDA-Public Use
  Company Number: BR-009507513-1908BRA007381

PATIENT
  Age: 70 Year
  Sex: Male
  Weight: 64 kg

DRUGS (4)
  1. ALOGLIPTIN BENZOATE (+) METFORMIN HYDROCHLORIDE [Concomitant]
  2. BROMOPRIDE [Concomitant]
     Active Substance: BROMOPRIDE
  3. PEMBROLIZUMAB. [Suspect]
     Active Substance: PEMBROLIZUMAB
     Indication: METASTATIC MALIGNANT MELANOMA
     Dosage: (FREQUENCY: ONCE A DAY FOR 21 DAYS) POSOLOGY: 133 MG VIAL, RECONSTITUTED EACH 1 MG IN 0 ML, SEPARATE
     Route: 042
     Dates: start: 20190618
  4. ESCITALOPRAM [Concomitant]
     Active Substance: ESCITALOPRAM OXALATE

REACTIONS (5)
  - Malignant neoplasm progression [Unknown]
  - Dizziness [Recovered/Resolved]
  - Cachexia [Fatal]
  - Nausea [Recovered/Resolved]
  - Diarrhoea [Recovered/Resolved]

NARRATIVE: CASE EVENT DATE: 2019
